FAERS Safety Report 11087234 (Version 1)
Quarter: 2015Q2

REPORT INFORMATION
  Report Type: Other
  Country: US (occurrence: US)
  Receive Date: 20150504
  Receipt Date: 20150504
  Transmission Date: 20150821
  Serious: Yes (Death, Hospitalization, Other)
  Sender: FDA-Public Use
  Company Number: US-ACORDA-ACO_111047_2015

PATIENT
  Age: 80 Year
  Sex: Female

DRUGS (1)
  1. AMPYRA [Suspect]
     Active Substance: DALFAMPRIDINE
     Indication: MULTIPLE SCLEROSIS
     Dosage: UNK, UNK
     Dates: start: 201411, end: 2014

REACTIONS (2)
  - Breast cancer [Fatal]
  - Pneumonia [Fatal]

NARRATIVE: CASE EVENT DATE: 201503
